FAERS Safety Report 9007465 (Version 1)
Quarter: 2013Q1

REPORT INFORMATION
  Report Type: Spontaneous
  Country: US (occurrence: US)
  Receive Date: 20130110
  Receipt Date: 20130110
  Transmission Date: 20140127
  Serious: Yes (Other)
  Sender: FDA-Public Use
  Company Number: US-009507513-1205USA03075

PATIENT
  Age: 3 Year
  Sex: 0
  Weight: 16 kg

DRUGS (1)
  1. SINGULAIR [Suspect]
     Indication: RHINITIS ALLERGIC
     Dosage: 1 PACKET
     Route: 048
     Dates: start: 20091001, end: 20110912

REACTIONS (9)
  - Anger [Unknown]
  - Abnormal behaviour [Unknown]
  - Abdominal pain upper [Unknown]
  - Aggression [Unknown]
  - Crying [Unknown]
  - Decreased appetite [Unknown]
  - Emotional disorder [Unknown]
  - Mental disorder [Unknown]
  - Screaming [Unknown]
